FAERS Safety Report 21285898 (Version 1)
Quarter: 2022Q3

REPORT INFORMATION
  Report Type: Spontaneous
  Country: AU (occurrence: AU)
  Receive Date: 20220902
  Receipt Date: 20220902
  Transmission Date: 20221027
  Serious: Yes (Other)
  Sender: FDA-Public Use
  Company Number: AU-TEVA-2022-AU-2069375

PATIENT
  Age: 48 Year
  Sex: Male
  Weight: 102 kg

DRUGS (15)
  1. ARIPIPRAZOLE [Suspect]
     Active Substance: ARIPIPRAZOLE
     Indication: Schizophrenia
     Dosage: 30 MILLIGRAM DAILY; EVENING
     Route: 065
  2. ATORVASTATIN [Suspect]
     Active Substance: ATORVASTATIN
     Indication: Prophylaxis
     Dosage: 40 MILLIGRAM DAILY; EVENING
     Route: 065
  3. CLOMIPRAMINE [Suspect]
     Active Substance: CLOMIPRAMINE
     Indication: Schizophrenia
     Dates: start: 2016, end: 201611
  4. CLOMIPRAMINE [Suspect]
     Active Substance: CLOMIPRAMINE
     Dates: start: 201611
  5. CLOMIPRAMINE [Suspect]
     Active Substance: CLOMIPRAMINE
     Dates: start: 2018
  6. CLOMIPRAMINE [Suspect]
     Active Substance: CLOMIPRAMINE
     Dates: start: 2015
  7. CLOMIPRAMINE [Suspect]
     Active Substance: CLOMIPRAMINE
     Dosage: 5 DOSAGE FORMS DAILY; EVENING
  8. GEMFIBROZIL [Suspect]
     Active Substance: GEMFIBROZIL
     Indication: Hypercholesterolaemia
     Dosage: 600 MILLIGRAM DAILY; EVENING
  9. ASENAPINE [Suspect]
     Active Substance: ASENAPINE
     Indication: Schizophrenia
     Dosage: EVENING
  10. ASENAPINE [Suspect]
     Active Substance: ASENAPINE
     Dosage: EVENING
     Dates: start: 2018
  11. ASENAPINE [Suspect]
     Active Substance: ASENAPINE
     Dosage: 10 MILLIGRAM DAILY;
     Dates: start: 202201, end: 202201
  12. ASENAPINE [Suspect]
     Active Substance: ASENAPINE
     Dosage: 3 DOSAGE FORMS DAILY; 10MG, 20MG
     Dates: start: 202201
  13. RISPERIDONE [Suspect]
     Active Substance: RISPERIDONE
     Indication: Product used for unknown indication
     Dosage: .5 MILLIGRAM DAILY; EVENING
     Dates: start: 202111
  14. RISPERIDONE [Suspect]
     Active Substance: RISPERIDONE
     Dosage: EVENING
     Dates: end: 20220124
  15. METFORMIN [Suspect]
     Active Substance: METFORMIN HYDROCHLORIDE
     Indication: Type 2 diabetes mellitus
     Dosage: 500 MILLIGRAM DAILY; EVENING
     Dates: start: 2021

REACTIONS (14)
  - Schizophrenia [Unknown]
  - Major depression [Unknown]
  - Suicidal ideation [Unknown]
  - Hallucination, auditory [Recovered/Resolved]
  - Social anxiety disorder [Unknown]
  - Cholelithiasis [Unknown]
  - Liver function test abnormal [Recovering/Resolving]
  - COVID-19 [Unknown]
  - Iron deficiency anaemia [Unknown]
  - Microcytic anaemia [Unknown]
  - Product use in unapproved indication [Unknown]
  - Drug ineffective [Unknown]
  - Weight increased [Unknown]
  - Therapeutic product effect incomplete [Unknown]
